FAERS Safety Report 17147664 (Version 2)
Quarter: 2020Q3

REPORT INFORMATION
  Report Type: Report from Study
  Country: CN (occurrence: CN)
  Receive Date: 20191212
  Receipt Date: 20200825
  Transmission Date: 20201102
  Serious: Yes (Death)
  Sender: FDA-Public Use
  Company Number: CN-ROCHE-2485884

PATIENT
  Sex: Male
  Weight: 50 kg

DRUGS (9)
  1. FLUOROURACIL. [Suspect]
     Active Substance: FLUOROURACIL
     Indication: COLORECTAL CANCER METASTATIC
     Dosage: THE PATIENT RECEIVED THE MOST RECENT DOSE OF FLUOROURACIL, PRIOR TO THE EVENT, ON 16?APR?2018, AT A
     Route: 042
     Dates: start: 20180414
  2. LEUCOVORIN. [Suspect]
     Active Substance: LEUCOVORIN
     Indication: COLORECTAL CANCER METASTATIC
     Route: 065
     Dates: start: 20180414
  3. IRINOTECAN [Suspect]
     Active Substance: IRINOTECAN
     Indication: COLORECTAL CANCER METASTATIC
     Route: 065
     Dates: start: 20180414
  4. GLYCYRRHIZIN [Concomitant]
     Active Substance: GLYCYRRHIZIN
     Indication: BLOOD BILIRUBIN INCREASED
  5. MORPHINE HYDROCHLORIDE [Concomitant]
     Active Substance: MORPHINE HYDROCHLORIDE
     Dates: start: 20180514
  6. BBI608 OR PLACEBO [Suspect]
     Active Substance: NAPABUCASIN
     Indication: COLORECTAL CANCER METASTATIC
     Dosage: THE PATIENT?RECEIVED THE MOST RECENT DOSE OF STUDY DRUG BBI?608, PRIOR TO THE EVENT, ON 09?MAY?2018
     Route: 048
     Dates: start: 20180410, end: 20180509
  7. OXYCODONE HYDROCHLORIDE. [Concomitant]
     Active Substance: OXYCODONE HYDROCHLORIDE
     Dates: start: 20180504
  8. BEVACIZUMAB. [Suspect]
     Active Substance: BEVACIZUMAB
     Indication: COLORECTAL CANCER METASTATIC
     Dosage: THE PATIENT RECEIVED THE MOST RECENT DOSE OF BEVACIZUMAB ON 14?APR?2018 AT A DOSE OF 255 MG ONCE IN
     Route: 042
     Dates: start: 20180414, end: 20180414
  9. GLYCYRRHIZIN [Concomitant]
     Active Substance: GLYCYRRHIZIN
     Indication: ASPARTATE AMINOTRANSFERASE INCREASED

REACTIONS (1)
  - Colon cancer [Fatal]
